FAERS Safety Report 24293346 (Version 1)
Quarter: 2024Q3

REPORT INFORMATION
  Report Type: Spontaneous
  Country: US (occurrence: None)
  Receive Date: 20240906
  Receipt Date: 20240906
  Transmission Date: 20241016
  Serious: No
  Sender: DOMPE FARMACEUTICI
  Company Number: US-FARMAPROD-202308-202401-0017

PATIENT
  Sex: Female

DRUGS (22)
  1. OXERVATE [Suspect]
     Active Substance: CENEGERMIN-BKBJ
     Indication: Neurotrophic keratopathy
     Route: 047
     Dates: start: 20231120
  2. RESTASIS [Concomitant]
     Active Substance: CYCLOSPORINE
  3. REFRESH TEARS [Concomitant]
     Active Substance: CARBOXYMETHYLCELLULOSE SODIUM
  4. ZYRTEC [Concomitant]
     Active Substance: CETIRIZINE HYDROCHLORIDE
  5. CREON [Concomitant]
     Active Substance: PANCRELIPASE AMYLASE\PANCRELIPASE LIPASE\PANCRELIPASE PROTEASE
     Dosage: 36K-114K
  6. CYCLOSPORINE [Concomitant]
     Active Substance: CYCLOSPORINE
  7. IRON [Concomitant]
     Active Substance: IRON
     Dosage: 325(65)
  8. PATADAY ONCE DAILY RELIEF [Concomitant]
     Active Substance: OLOPATADINE HYDROCHLORIDE
  9. OMEPRAZOLE [Concomitant]
     Active Substance: OMEPRAZOLE
  10. PROPRANOLOL HYDROCHLORIDE [Concomitant]
     Active Substance: PROPRANOLOL HYDROCHLORIDE
  11. TRAMADOL HCL [Concomitant]
     Active Substance: TRAMADOL HYDROCHLORIDE
  12. URSODIOL [Concomitant]
     Active Substance: URSODIOL
  13. VALTREX [Concomitant]
     Active Substance: VALACYCLOVIR HYDROCHLORIDE
  14. VITAMIN A [Concomitant]
     Active Substance: VITAMIN A
  15. VITAMIN B12 [Concomitant]
     Active Substance: CYANOCOBALAMIN
  16. VITAMIN E [Concomitant]
     Active Substance: .ALPHA.-TOCOPHEROL
  17. XIFAXAN [Concomitant]
     Active Substance: RIFAXIMIN
  18. ZINC [Concomitant]
     Active Substance: ZINC
     Dosage: -220 50(220)MG
  19. MAGNESIUM [Concomitant]
     Active Substance: MAGNESIUM
  20. VITAMINS [Concomitant]
     Active Substance: VITAMINS
  21. VITAMIN D3 [Concomitant]
     Active Substance: CHOLECALCIFEROL
  22. CALCIUM [Concomitant]
     Active Substance: CALCIUM

REACTIONS (1)
  - Eye pain [Unknown]
